FAERS Safety Report 6522341-4 (Version None)
Quarter: 2009Q4

REPORT INFORMATION
  Report Type: 
  Country: None (occurrence: None)
  Receive Date: 20091230
  Receipt Date: 20091221
  Transmission Date: 20100525
  Serious: Yes (Hospitalization)
  Sender: FDA-Public Use
  Company Number: B0621567A

PATIENT
  Age: 80 Year
  Sex: Female

DRUGS (8)
  1. ZINNAT [Suspect]
     Indication: URINARY TRACT INFECTION
     Dosage: 500MG TWICE PER DAY
     Route: 048
     Dates: start: 20090725, end: 20090730
  2. SINTROM [Suspect]
     Indication: DRUG USE FOR UNKNOWN INDICATION
     Route: 048
     Dates: start: 20070101, end: 20090807
  3. FLATORIL [Concomitant]
     Indication: FLATULENCE
     Route: 048
     Dates: start: 20070101, end: 20090803
  4. DENUBIL [Concomitant]
     Route: 048
     Dates: start: 20070101, end: 20090803
  5. DIGOXIN [Concomitant]
     Indication: ATRIAL FIBRILLATION
     Dosage: 250MCG PER DAY
     Route: 048
  6. ZARATOR [Concomitant]
     Dosage: 40MG PER DAY
     Route: 048
  7. OMEPRAZOL [Concomitant]
     Route: 048
     Dates: start: 20070101
  8. EMCONCOR [Concomitant]
     Dosage: 5MG PER DAY

REACTIONS (3)
  - DRUG INTERACTION [None]
  - PERICARDIAL HAEMORRHAGE [None]
  - PERICARDITIS CONSTRICTIVE [None]
